FAERS Safety Report 8600136-5 (Version None)
Quarter: 2012Q3

REPORT INFORMATION
  Report Type: 
  Country: None (occurrence: None)
  Receive Date: 20120817
  Receipt Date: 20120809
  Transmission Date: 20120928
  Serious: Yes (Life-Threatening, Hospitalization)
  Sender: FDA-Public Use
  Company Number: GB-AMGEN-GBRSP2012051456

PATIENT
  Age: 75 Year
  Sex: Female
  Weight: 64.8 kg

DRUGS (10)
  1. MEBEVERINE [Concomitant]
     Dosage: 135 MG, 3X/DAY WHEN REQUIRED, THREE TIMES A DAY - 08:00, 12:00 AND 18:00.
     Route: 048
  2. ATENOLOL [Concomitant]
     Dosage: 25 MG, 1X/DAY IN THE MORNING.
     Route: 048
  3. DEXAMETHASONE [Concomitant]
     Dosage: 4 MG, 2X/DAY MORNING AND LUNCH TIME.
     Route: 048
  4. SENNA                              /00142201/ [Concomitant]
     Dosage: 15 MG, 1X/DAY AT NIGHT.
     Route: 048
  5. ETANERCEPT [Suspect]
     Indication: RHEUMATOID ARTHRITIS
     Dosage: 25 MG, 2X/WEEK
     Route: 058
     Dates: start: 20040101, end: 20120101
  6. OMEPRAZOLE [Concomitant]
     Dosage: 10 MG, 1X/DAY EVERY MORNING.
     Route: 048
  7. BENDROFLUMETHIAZIDE [Concomitant]
     Dosage: 5 MG, 1X/DAY EVERY MORNING.
     Route: 048
  8. ALBUTEROL SULATE [Concomitant]
     Dosage: 2 DF, 4X/DAY WHEN REQUIRED
     Route: 055
  9. ALENDRONATE SODIUM [Concomitant]
     Dosage: 70 MG, WEEKLYONCE DAILY ON A WEDNESDAY.
     Route: 048
  10. LACTULOSE [Concomitant]
     Dosage: 10 ML, 2X/DAY MORNING AND EVENING.
     Route: 048

REACTIONS (1)
  - NON-SMALL CELL LUNG CANCER [None]
